FAERS Safety Report 9337251 (Version 2)
Quarter: 2013Q2

REPORT INFORMATION
  Report Type: Spontaneous
  Country: FI (occurrence: FI)
  Receive Date: 20130607
  Receipt Date: 20130621
  Transmission Date: 20140414
  Serious: Yes (Hospitalization)
  Sender: FDA-Public Use
  Company Number: FI-JNJFOC-20130601036

PATIENT
  Age: 24 Year
  Sex: Male
  Weight: 75 kg

DRUGS (7)
  1. REMICADE [Suspect]
     Indication: PRODUCT USED FOR UNKNOWN INDICATION
     Dosage: SIXTH DOSE
     Route: 042
     Dates: start: 20130311
  2. REMICADE [Suspect]
     Indication: PRODUCT USED FOR UNKNOWN INDICATION
     Dosage: FIFTH DOSE
     Route: 042
     Dates: start: 20130115
  3. REMICADE [Suspect]
     Indication: PRODUCT USED FOR UNKNOWN INDICATION
     Dosage: FOURTH DOSE
     Route: 042
     Dates: start: 20121122
  4. REMICADE [Suspect]
     Indication: PRODUCT USED FOR UNKNOWN INDICATION
     Dosage: THIRD DOSE
     Route: 042
     Dates: start: 20121011
  5. REMICADE [Suspect]
     Indication: PRODUCT USED FOR UNKNOWN INDICATION
     Route: 042
     Dates: start: 20120830
  6. AZAMUN [Concomitant]
     Route: 065
  7. ASACOL [Concomitant]
     Route: 065

REACTIONS (1)
  - Pancreatitis [Recovered/Resolved]
